FAERS Safety Report 6692217-0 (Version None)
Quarter: 2010Q2

REPORT INFORMATION
  Report Type: 
  Country: None (occurrence: None)
  Receive Date: 20100422
  Receipt Date: 20090716
  Transmission Date: 20101027
  Serious: No
  Sender: FDA-Public Use
  Company Number: US-ASTRAZENECA-2009UW20264

PATIENT
  Age: 68 Year
  Sex: Female

DRUGS (2)
  1. TOPROL-XL [Suspect]
     Indication: HEART RATE INCREASED
     Route: 048
     Dates: start: 20090606, end: 20090714
  2. TOPROL-XL [Suspect]
     Dosage: 50 MG IN AM, 25 MG AT NIGHT
     Route: 048
     Dates: start: 20090714

REACTIONS (8)
  - ASTHENIA [None]
  - CONSTIPATION [None]
  - DECREASED APPETITE [None]
  - DYSPNOEA [None]
  - FEELING HOT [None]
  - HOT FLUSH [None]
  - OESOPHAGEAL PAIN [None]
  - PYREXIA [None]
